FAERS Safety Report 10653679 (Version 1)
Quarter: 2014Q4

REPORT INFORMATION
  Report Type: Spontaneous
  Country: US (occurrence: US)
  Receive Date: 20141216
  Receipt Date: 20141216
  Transmission Date: 20150529
  Serious: Yes (Other)
  Sender: FDA-Public Use
  Company Number: US-AUROBINDO-AUR-APL-2014-12960

PATIENT
  Age: 36 Year
  Sex: Male

DRUGS (1)
  1. LAMOTRIGINE. [Suspect]
     Active Substance: LAMOTRIGINE
     Indication: PRODUCT USED FOR UNKNOWN INDICATION
     Dosage: 13.5 G, UNK
     Route: 065

REACTIONS (4)
  - Electrocardiogram QRS complex prolonged [Recovered/Resolved]
  - Intentional overdose [Recovered/Resolved]
  - Cardiotoxicity [Recovered/Resolved]
  - Suicide attempt [Recovered/Resolved]
